FAERS Safety Report 7974007-1 (Version None)
Quarter: 2011Q4

REPORT INFORMATION
  Report Type: 
  Country: None (occurrence: None)
  Receive Date: 20111213
  Receipt Date: 20111205
  Transmission Date: 20120403
  Serious: Yes (Other)
  Sender: FDA-Public Use
  Company Number: US-GLAXOSMITHKLINE-A0957580A

PATIENT
  Age: 59 Year
  Sex: Male

DRUGS (1)
  1. VENTOLIN [Suspect]
     Dosage: 2PUFF SEE DOSAGE TEXT
     Route: 055
     Dates: start: 20101101

REACTIONS (2)
  - FALL [None]
  - LOWER LIMB FRACTURE [None]
